FAERS Safety Report 16957578 (Version 3)
Quarter: 2019Q4

REPORT INFORMATION
  Report Type: Report from Study
  Country: US (occurrence: US)
  Receive Date: 20191024
  Receipt Date: 20191119
  Transmission Date: 20200122
  Serious: Yes (Hospitalization)
  Sender: FDA-Public Use
  Company Number: US-JNJFOC-20191018969

PATIENT
  Age: 13 Year
  Sex: Male

DRUGS (11)
  1. CETIRIZINE [Concomitant]
     Active Substance: CETIRIZINE HYDROCHLORIDE
  2. 5-ASA [Concomitant]
     Active Substance: MESALAMINE
  3. PARACETAMOL [Concomitant]
     Active Substance: ACETAMINOPHEN
  4. HUMIRA [Suspect]
     Active Substance: ADALIMUMAB
     Route: 065
     Dates: start: 20190509
  5. CALMOSEPTINE                       /00156514/ [Concomitant]
  6. INFLIXIMAB, RECOMBINANT [Suspect]
     Active Substance: INFLIXIMAB
     Indication: INFLAMMATORY BOWEL DISEASE
     Route: 042
     Dates: start: 20121129
  7. INFLIXIMAB, RECOMBINANT [Suspect]
     Active Substance: INFLIXIMAB
     Route: 042
     Dates: start: 20190320, end: 20190501
  8. HYDROCORTISONE. [Concomitant]
     Active Substance: HYDROCORTISONE
  9. HYOSCYAMINE. [Concomitant]
     Active Substance: HYOSCYAMINE
  10. CYPROHEPTADINE. [Concomitant]
     Active Substance: CYPROHEPTADINE
  11. ONDANSETRON [Concomitant]
     Active Substance: ONDANSETRON

REACTIONS (1)
  - Herpes simplex oesophagitis [Recovered/Resolved]

NARRATIVE: CASE EVENT DATE: 20190926
